FAERS Safety Report 24103356 (Version 2)
Quarter: 2025Q1

REPORT INFORMATION
  Report Type: Spontaneous
  Country: US (occurrence: US)
  Receive Date: 20240717
  Receipt Date: 20250209
  Transmission Date: 20250409
  Serious: No
  Sender: ABBVIE
  Company Number: US-ABBVIE-5841677

PATIENT
  Sex: Male

DRUGS (7)
  1. LUPRON DEPOT [Suspect]
     Active Substance: LEUPROLIDE ACETATE
     Indication: Product used for unknown indication
     Route: 065
  2. XTANDI [Suspect]
     Active Substance: ENZALUTAMIDE
     Indication: Prostate cancer
     Dosage: STRENGTH: 40 MILLIGRAM?TAKE 4 CAPSULES BY MOUTH DAILY WHOLE WITH WATER, WITH OR WITHOUT FOOD. TOT...
     Route: 048
  3. XTANDI [Suspect]
     Active Substance: ENZALUTAMIDE
     Indication: Prostate cancer
     Route: 048
  4. CRESTOR [Concomitant]
     Active Substance: ROSUVASTATIN CALCIUM
     Indication: Product used for unknown indication
     Route: 065
  5. TIMOLOL MALEATE [Concomitant]
     Active Substance: TIMOLOL MALEATE
     Indication: Product used for unknown indication
     Route: 065
  6. COENZYME Q10 [Concomitant]
     Active Substance: DIETARY SUPPLEMENT\UBIDECARENONE
     Indication: Product used for unknown indication
     Route: 065
  7. VITAMIN D [Concomitant]
     Active Substance: VITAMIN D NOS
     Indication: Product used for unknown indication
     Route: 065

REACTIONS (2)
  - Poor quality sleep [Not Recovered/Not Resolved]
  - Hot flush [Not Recovered/Not Resolved]
